FAERS Safety Report 10682122 (Version 3)
Quarter: 2015Q4

REPORT INFORMATION
  Report Type: Spontaneous
  Country: BR (occurrence: BR)
  Receive Date: 20141230
  Receipt Date: 20151029
  Transmission Date: 20160304
  Serious: Yes (Other)
  Sender: FDA-Public Use
  Company Number: BR-SA-2014SA173373

PATIENT
  Sex: Male
  Weight: 103 kg

DRUGS (23)
  1. FUROSEMIDE. [Concomitant]
     Active Substance: FUROSEMIDE
     Indication: DIURETIC THERAPY
     Route: 048
     Dates: start: 2007
  2. INSULIN LISPRO [Concomitant]
     Active Substance: INSULIN LISPRO
     Indication: TYPE 2 DIABETES MELLITUS
     Dosage: 2 IU^S EVERY 100MG/DL CHANGED UPTO GLYCEMIC VALUE OF 100MG / DL
     Dates: start: 2009
  3. LEVOTHYROXINE SODIUM. [Concomitant]
     Active Substance: LEVOTHYROXINE SODIUM
     Indication: THYROID DISORDER
     Dates: start: 2008
  4. LOSARTAN. [Concomitant]
     Active Substance: LOSARTAN
     Indication: CARDIAC DISORDER
     Dosage: 100MG
     Route: 048
     Dates: start: 2007
  5. FORXIGA [Concomitant]
     Active Substance: DAPAGLIFLOZIN
     Indication: TYPE 2 DIABETES MELLITUS
     Dates: start: 2001
  6. ALLOPURINOL. [Concomitant]
     Active Substance: ALLOPURINOL
     Indication: RENAL DISORDER
     Dosage: 100MG
     Route: 048
     Dates: start: 2015
  7. CLIKSTAR [Concomitant]
     Active Substance: CLIKSTAR
     Indication: DEVICE THERAPY
     Dates: start: 2009
  8. SELOKEN [Concomitant]
     Active Substance: METOPROLOL
     Indication: CARDIAC DISORDER
     Dates: start: 2008
  9. LANTUS [Suspect]
     Active Substance: INSULIN GLARGINE
     Indication: TYPE 2 DIABETES MELLITUS
     Dosage: DOSE: 65IU IN MORNING AND 45IU AT NIGHT
     Route: 058
     Dates: start: 2009
  10. LANTUS [Suspect]
     Active Substance: INSULIN GLARGINE
     Indication: TYPE 2 DIABETES MELLITUS
     Route: 058
  11. CLIKSTAR [Concomitant]
     Active Substance: CLIKSTAR
     Indication: DEVICE THERAPY
     Dates: start: 2013
  12. LANTUS [Suspect]
     Active Substance: INSULIN GLARGINE
     Indication: TYPE 2 DIABETES MELLITUS
     Dosage: 50-75 IU
     Route: 058
  13. LIPANON [Suspect]
     Active Substance: FENOFIBRATE
     Indication: BLOOD CHOLESTEROL ABNORMAL
     Dosage: 250 MG
     Route: 065
  14. AMLODIPINE [Concomitant]
     Active Substance: AMLODIPINE BESYLATE
     Indication: CARDIAC DISORDER
     Dosage: STRENGTH: 2.5
     Route: 048
     Dates: start: 2007
  15. TRADJENTA [Concomitant]
     Active Substance: LINAGLIPTIN
     Indication: TYPE 2 DIABETES MELLITUS
     Dosage: 2-3 YEARS?5MG
  16. LANTUS [Suspect]
     Active Substance: INSULIN GLARGINE
     Indication: TYPE 2 DIABETES MELLITUS
     Dosage: DOSE:65 U IN MORNING 45 UNITS AT NIGHT?ROUTE: NAVEL 4 TO THE RIGHJT 4 TO THE LEFT
     Dates: start: 2013
  17. ASPIRIN. [Concomitant]
     Active Substance: ASPIRIN
     Indication: SENSATION OF BLOOD FLOW
     Dosage: 100MG
     Route: 048
     Dates: start: 1998
  18. LIPANON [Concomitant]
     Active Substance: FENOFIBRATE
     Indication: BLOOD CHOLESTEROL
     Dates: start: 201411
  19. SELOZOK [Concomitant]
     Active Substance: METOPROLOL SUCCINATE
     Indication: CARDIAC DISCOMFORT
     Dosage: 50MG
     Route: 048
     Dates: start: 2010
  20. LANTUS [Suspect]
     Active Substance: INSULIN GLARGINE
     Indication: TYPE 2 DIABETES MELLITUS
     Dosage: 50-75 IU
     Route: 058
  21. ATORVASTATIN [Concomitant]
     Active Substance: ATORVASTATIN
     Indication: BLOOD TRIGLYCERIDES
  22. ATORVASTATIN [Suspect]
     Active Substance: ATORVASTATIN
     Indication: BLOOD CHOLESTEROL ABNORMAL
     Dosage: 10 MG
     Route: 065
  23. ASPIRIN. [Concomitant]
     Active Substance: ASPIRIN
     Indication: CARDIAC DISORDER
     Dosage: 100MG
     Route: 048
     Dates: start: 1998

REACTIONS (21)
  - Renal failure [Unknown]
  - Hepatic steatosis [Unknown]
  - Weight decreased [Unknown]
  - Paraesthesia [Not Recovered/Not Resolved]
  - Muscle spasms [Not Recovered/Not Resolved]
  - Jaw disorder [Unknown]
  - Low density lipoprotein [Unknown]
  - Drug administration error [Unknown]
  - Cataract operation [Unknown]
  - Blood glucose increased [Not Recovered/Not Resolved]
  - Abnormal sensation in eye [Unknown]
  - Oral discomfort [Unknown]
  - Stress [Unknown]
  - Tooth infection [Unknown]
  - Bone loss [Unknown]
  - Visual impairment [Not Recovered/Not Resolved]
  - Paraesthesia [Unknown]
  - Blood triglycerides increased [Unknown]
  - Sensory loss [Not Recovered/Not Resolved]
  - Off label use [Unknown]
  - Mastication disorder [Unknown]

NARRATIVE: CASE EVENT DATE: 2009
